FAERS Safety Report 4496705-7 (Version None)
Quarter: 2004Q4

REPORT INFORMATION
  Report Type: 
  Country: None (occurrence: None)
  Receive Date: 20040923
  Receipt Date: 20040708
  Transmission Date: 20050328
  Serious: No
  Sender: FDA-Public Use
  Company Number: P2004000005

PATIENT
  Age: 75 Year
  Sex: Male

DRUGS (9)
  1. PLENAXIS [Suspect]
     Indication: PROSTATE CANCER
     Dosage: 100 MG, SINGLE, INTRAMUSCULAR
     Route: 030
     Dates: start: 20040624, end: 20040624
  2. CASODEX [Concomitant]
  3. DETROL [Concomitant]
  4. FLOMAX [Concomitant]
  5. GLUCOPHAGE [Concomitant]
  6. MEGACE [Concomitant]
  7. VITAMIN D [Concomitant]
  8. ZESTRIL [Concomitant]
  9. HYDROCHLOROTHIAZIDE [Concomitant]

REACTIONS (4)
  - ARTHRALGIA [None]
  - BACK PAIN [None]
  - FATIGUE [None]
  - SWELLING [None]
